FAERS Safety Report 16609523 (Version 5)
Quarter: 2021Q2

REPORT INFORMATION
  Report Type: Spontaneous
  Country: US (occurrence: US)
  Receive Date: 20190722
  Receipt Date: 20210608
  Transmission Date: 20210716
  Serious: No
  Sender: FDA-Public Use
  Company Number: US-PFIZER INC-2019306158

PATIENT
  Age: 62 Year
  Sex: Female
  Weight: 52 kg

DRUGS (7)
  1. BENZONATATE. [Concomitant]
     Active Substance: BENZONATATE
     Dosage: 100 MG, 3X/DAY
     Dates: start: 20190702
  2. AMOXCLAV [AMOXICILLIN;CLAVULANIC ACID] [Concomitant]
     Active Substance: AMOXICILLIN\CLAVULANIC ACID
     Dosage: 125 MG, 2X/DAY
     Dates: start: 20190614
  3. IBRANCE [Suspect]
     Active Substance: PALBOCICLIB
     Indication: BREAST CANCER FEMALE
     Dosage: 100 MG, UNK
     Dates: start: 20190526, end: 2019
  4. LETROZOLE. [Concomitant]
     Active Substance: LETROZOLE
     Dosage: UNK
     Dates: start: 20190216
  5. AMOXCLAV [AMOXICILLIN;CLAVULANIC ACID] [Concomitant]
     Active Substance: AMOXICILLIN\CLAVULANIC ACID
     Dosage: 125 MG, 2X/DAY
     Dates: start: 20190709
  6. IBRANCE [Suspect]
     Active Substance: PALBOCICLIB
     Dosage: 125 MG, UNK
     Dates: start: 2019
  7. IBRANCE [Suspect]
     Active Substance: PALBOCICLIB
     Dosage: 100 MG, CYCLIC (IBRANCE 100MG BY MOUTH QD (ONCE A DAY) FOR 21 DAYS)
     Route: 048
     Dates: start: 20200131

REACTIONS (5)
  - Alopecia [Unknown]
  - White blood cell count decreased [Unknown]
  - COVID-19 [Unknown]
  - Fatigue [Not Recovered/Not Resolved]
  - Viral infection [Not Recovered/Not Resolved]

NARRATIVE: CASE EVENT DATE: 2019
